FAERS Safety Report 18425579 (Version 7)
Quarter: 2021Q1

REPORT INFORMATION
  Report Type: Spontaneous
  Country: BR (occurrence: BR)
  Receive Date: 20201026
  Receipt Date: 20210309
  Transmission Date: 20210419
  Serious: Yes (Life-Threatening, Hospitalization, Other)
  Sender: FDA-Public Use
  Company Number: BR-GLAXOSMITHKLINE-BR2020AMR210196

PATIENT
  Age: 30 Year
  Sex: Female
  Weight: 102 kg

DRUGS (8)
  1. LEVOFLOXACIN. [Suspect]
     Active Substance: LEVOFLOXACIN
     Indication: PRODUCT USED FOR UNKNOWN INDICATION
     Dosage: 750 MG
  2. AZITHROMYCIN ANHYDROUS. [Suspect]
     Active Substance: AZITHROMYCIN ANHYDROUS
     Indication: PRODUCT USED FOR UNKNOWN INDICATION
     Dosage: 500 MG,(EVERY OTHER DAY)
  3. PREDNISOLONE. [Suspect]
     Active Substance: PREDNISOLONE
     Indication: PRODUCT USED FOR UNKNOWN INDICATION
     Dosage: 20 MG,(CEVERY OTHER DAY)
  4. XOLAIR [Suspect]
     Active Substance: OMALIZUMAB
     Indication: PRODUCT USED FOR UNKNOWN INDICATION
     Dosage: UNK
  5. SPIRIVA [Suspect]
     Active Substance: TIOTROPIUM BROMIDE MONOHYDRATE
     Indication: PRODUCT USED FOR UNKNOWN INDICATION
     Dosage: UNK UNK, BID
  6. NUCALA [Suspect]
     Active Substance: MEPOLIZUMAB
     Indication: ASTHMA
     Dosage: 100 MG, EVERY 28 DAYS
     Dates: start: 20200808, end: 20201130
  7. MONTELUKAST [Suspect]
     Active Substance: MONTELUKAST SODIUM
     Indication: PRODUCT USED FOR UNKNOWN INDICATION
     Dosage: 10 MG
  8. ALENIA (BUDESONIDA + FORMOTEROL) [Suspect]
     Active Substance: BUDESONIDE\FORMOTEROL FUMARATE
     Indication: PRODUCT USED FOR UNKNOWN INDICATION
     Dosage: UNK UNK, TID

REACTIONS (43)
  - Bronchospasm [Unknown]
  - Lung disorder [Unknown]
  - Dyspnoea [Not Recovered/Not Resolved]
  - Chest pain [Not Recovered/Not Resolved]
  - Malaise [Unknown]
  - Back pain [Unknown]
  - Haematocrit increased [Unknown]
  - Wheezing [Not Recovered/Not Resolved]
  - Pneumonia viral [Unknown]
  - Pain in extremity [Unknown]
  - Condition aggravated [Unknown]
  - Red blood cell count increased [Unknown]
  - Aphasia [Unknown]
  - Gastroplasty [Unknown]
  - Respiratory arrest [Unknown]
  - Weight increased [Unknown]
  - Glucose tolerance impaired [Unknown]
  - Gait disturbance [Unknown]
  - Painful respiration [Not Recovered/Not Resolved]
  - Neutrophilia [Unknown]
  - Inappropriate schedule of product administration [Unknown]
  - Intestinal stenosis [Unknown]
  - Asthma [Unknown]
  - Influenza [Unknown]
  - Headache [Unknown]
  - Chest discomfort [Not Recovered/Not Resolved]
  - Polymerase chain reaction positive [Unknown]
  - Activated partial thromboplastin time ratio abnormal [Unknown]
  - Alanine aminotransferase abnormal [Unknown]
  - White blood cell count decreased [Unknown]
  - Eosinophil count decreased [Unknown]
  - Respiratory failure [Unknown]
  - Coma [Recovered/Resolved]
  - Asthmatic crisis [Recovering/Resolving]
  - Sneezing [Unknown]
  - Dyspepsia [Unknown]
  - Hypertension [Unknown]
  - Suspected COVID-19 [Recovered/Resolved]
  - Platelet count increased [Unknown]
  - Feeding disorder [Unknown]
  - Vomiting [Unknown]
  - Fluid retention [Unknown]
  - Hypokinesia [Unknown]

NARRATIVE: CASE EVENT DATE: 2019
